FAERS Safety Report 7508178 (Version 2)
Quarter: 2013Q1

REPORT INFORMATION
  Report Type: Spontaneous
  Country: US (occurrence: None)
  Receive Date: 20100715
  Receipt Date: 20130226
  Transmission Date: 20140127
  Serious: Yes (Other)
  Sender: FDA-Public Use
  Company Number: 2010AP001353

PATIENT
  Age: 46 Year
  Sex: Female

DRUGS (2)
  1. LEVETIRACETAM [Suspect]
     Dosage: 500 MG; BID; 1000 MG;BID; 250 MG;Q12H; 500 MG;Q12H; 750 MG;Q12H
  2. PHENYTOIN [Concomitant]

REACTIONS (11)
  - RASH PRURITIC [None]
  - NO THERAPEUTIC RESPONSE [None]
  - SEDATION [None]
  - RASH MACULAR [None]
  - DERMATITIS [None]
  - SKIN OEDEMA [None]
  - DRUG ERUPTION [None]
  - DRUG INEFFECTIVE [None]
  - COGNITIVE DISORDER [None]
  - SOMNOLENCE [None]
  - BRADYKINESIA [None]
